FAERS Safety Report 9086016 (Version 2)
Quarter: 2013Q1

REPORT INFORMATION
  Report Type: Spontaneous
  Country: US (occurrence: US)
  Receive Date: 20130218
  Receipt Date: 20130228
  Transmission Date: 20140127
  Serious: Yes (Death, Other)
  Sender: FDA-Public Use
  Company Number: US-009507513-1302USA006157

PATIENT
  Age: 55 Year
  Sex: Male

DRUGS (10)
  1. COZAAR [Suspect]
  2. OMEGA-3 MARINE TRIGLYCERIDES [Concomitant]
  3. LASIX (FUROSEMIDE SODIUM) [Concomitant]
  4. GABAPENTIN [Concomitant]
  5. LEVEMIR [Concomitant]
  6. NOVOLOG [Concomitant]
  7. LIPITOR [Concomitant]
  8. METOPROLOL [Concomitant]
  9. ASPIRIN [Concomitant]
  10. ACIPHEX [Concomitant]

REACTIONS (1)
  - Acute myocardial infarction [Fatal]
